FAERS Safety Report 4922018-2 (Version None)
Quarter: 2006Q1

REPORT INFORMATION
  Report Type: 
  Country: None (occurrence: None)
  Receive Date: 20060224
  Receipt Date: 20060222
  Transmission Date: 20060701
  Serious: Yes (Other)
  Sender: FDA-Public Use
  Company Number: US-GLAXOSMITHKLINE-A0594712A

PATIENT
  Age: 46 Year
  Sex: Female

DRUGS (7)
  1. NICORETTE (MINT) [Suspect]
     Dosage: 2MG SEE DOSAGE TEXT
     Dates: start: 20050101
  2. NICORETTE [Suspect]
     Dosage: 4MG SEE DOSAGE TEXT
     Dates: start: 20050101
  3. OMEPRAZOLE [Concomitant]
  4. LIPITOR [Concomitant]
  5. CELEXA [Concomitant]
  6. TRAZODONE [Concomitant]
  7. ADVIL [Concomitant]

REACTIONS (14)
  - ANAEMIA [None]
  - BLOOD CREATININE INCREASED [None]
  - BLOOD ELECTROLYTES ABNORMAL [None]
  - BLOOD URINE PRESENT [None]
  - BONE MARROW DISORDER [None]
  - CHROMATURIA [None]
  - DEHYDRATION [None]
  - DIARRHOEA [None]
  - DRUG ABUSER [None]
  - NAUSEA [None]
  - PAIN [None]
  - PYREXIA [None]
  - RENAL FAILURE [None]
  - VOMITING [None]
